FAERS Safety Report 4606046-2 (Version None)
Quarter: 2005Q2

REPORT INFORMATION
  Report Type: 
  Country: None (occurrence: None)
  Receive Date: 20050303
  Receipt Date: 20041103
  Transmission Date: 20051028
  Serious: No
  Sender: FDA-Public Use
  Company Number: 200420951BWH

PATIENT
  Age: 56 Year
  Sex: Male
  Weight: 109.7705 kg

DRUGS (5)
  1. LEVITRA [Suspect]
     Dosage: 10 MG, PRN, ORAL
     Route: 048
     Dates: start: 20041019
  2. LEVITRA [Suspect]
     Dosage: 10 MG, PRN, ORAL
     Route: 048
     Dates: start: 20041022
  3. LEVITRA [Suspect]
     Dosage: 10 MG, PRN, ORAL
     Route: 048
     Dates: start: 20041024
  4. VICODIN [Concomitant]
  5. FLONASE [Concomitant]

REACTIONS (1)
  - DYSPEPSIA [None]
